FAERS Safety Report 8380765-7 (Version None)
Quarter: 2012Q2

REPORT INFORMATION
  Report Type: 
  Country: None (occurrence: None)
  Receive Date: 20120430
  Receipt Date: 20120417
  Transmission Date: 20120825
  Serious: Yes (Hospitalization, Other)
  Sender: FDA-Public Use
  Company Number: 2012PROUSA01268

PATIENT
  Age: 66 Year
  Sex: Male
  Weight: 74 kg

DRUGS (13)
  1. TRAMADOL HCL [Concomitant]
  2. NORVASC [Concomitant]
  3. XANAX [Concomitant]
  4. LISINOPRIL [Concomitant]
  5. SERTRALINE HYDROCHLORIDE [Concomitant]
  6. FLOMAX [Concomitant]
  7. LIPITOR [Concomitant]
  8. NITROGLYCERIN [Concomitant]
  9. CYMBALTA [Concomitant]
  10. PROVENGE [Suspect]
     Indication: PROSTATE CANCER METASTATIC
     Dosage: 250 ML, SINGLE, INTRAVENOUS, 250 ML, SINGLE, INTRAVENOUS
     Route: 042
     Dates: start: 20120302, end: 20120302
  11. PROVENGE [Suspect]
     Indication: PROSTATE CANCER METASTATIC
     Dosage: 250 ML, SINGLE, INTRAVENOUS, 250 ML, SINGLE, INTRAVENOUS
     Route: 042
     Dates: start: 20120316, end: 20120316
  12. PROVENGE [Suspect]
  13. AMBIEN [Concomitant]

REACTIONS (7)
  - TREMOR [None]
  - UNRESPONSIVE TO STIMULI [None]
  - TRANSIENT ISCHAEMIC ATTACK [None]
  - METASTASES TO SPINE [None]
  - STARING [None]
  - HYPOTENSION [None]
  - SOMNOLENCE [None]
